FAERS Safety Report 23312749 (Version 3)
Quarter: 2024Q1

REPORT INFORMATION
  Report Type: Report from Study
  Country: CO (occurrence: CO)
  Receive Date: 20231219
  Receipt Date: 20240122
  Transmission Date: 20240409
  Serious: Yes (Other)
  Sender: FDA-Public Use
  Company Number: CO-BAYER-2023A179386

PATIENT
  Sex: Female

DRUGS (3)
  1. EYLEA [Suspect]
     Active Substance: AFLIBERCEPT
     Indication: Diabetic retinal oedema
     Dosage: 2 MG, INTRAVITREALLY MONTHLY FOR 5 MONTHS, AND THEN EVERY 2 MONTHS; SOL FOR INJ; STRENGTH: 40 MG/ML
     Route: 031
     Dates: start: 2023
  2. EYLEA [Suspect]
     Active Substance: AFLIBERCEPT
     Dosage: 2 MG, ONCE (FIRST INJECTION OF EYLIA), SOL FOR INJ; STRENGTH: 40 MG/ML
     Route: 031
     Dates: start: 2023, end: 2023
  3. EYLEA [Suspect]
     Active Substance: AFLIBERCEPT
     Dosage: 2 MG, ONCE, SOLUTION FOR INJECTION; STRENGTH: 40 MG/ML
     Route: 031
     Dates: start: 20231125, end: 20231125

REACTIONS (3)
  - Blindness [Not Recovered/Not Resolved]
  - Cataract [Not Recovered/Not Resolved]
  - Depressed mood [Not Recovered/Not Resolved]

NARRATIVE: CASE EVENT DATE: 20230101
